FAERS Safety Report 10401115 (Version 1)
Quarter: 2014Q3

REPORT INFORMATION
  Report Type: Spontaneous
  Country: BR (occurrence: BR)
  Receive Date: 20140822
  Receipt Date: 20140822
  Transmission Date: 20150326
  Serious: Yes (Other)
  Sender: FDA-Public Use
  Company Number: BR-AMGEN-BRASP2014063725

PATIENT
  Age: 39 Year
  Sex: Female
  Weight: 82 kg

DRUGS (1)
  1. ENBREL [Suspect]
     Active Substance: ETANERCEPT
     Indication: RHEUMATOID ARTHRITIS
     Dosage: 50 MG, WEEKLY
     Route: 058
     Dates: start: 20130222

REACTIONS (4)
  - Peripheral swelling [Unknown]
  - Diabetes mellitus [Unknown]
  - Cyst [Unknown]
  - Joint effusion [Unknown]

NARRATIVE: CASE EVENT DATE: 201302
